FAERS Safety Report 6184759-1 (Version None)
Quarter: 2009Q2

REPORT INFORMATION
  Report Type: 
  Country: None (occurrence: None)
  Receive Date: 20090508
  Receipt Date: 20090428
  Transmission Date: 20091009
  Serious: Yes (Hospitalization, Other)
  Sender: FDA-Public Use
  Company Number: PHHY2009BR17521

PATIENT
  Age: 82 Year
  Sex: Female

DRUGS (2)
  1. DIOVAN [Suspect]
  2. FORASEQ [Concomitant]
     Indication: WHEEZING

REACTIONS (3)
  - HEAD DISCOMFORT [None]
  - PNEUMONIA [None]
  - WHEEZING [None]
